FAERS Safety Report 6744700-7 (Version None)
Quarter: 2010Q2

REPORT INFORMATION
  Report Type: 
  Country: None (occurrence: None)
  Receive Date: 20100526
  Receipt Date: 20100526
  Transmission Date: 20101027
  Serious: Yes (Hospitalization)
  Sender: FDA-Public Use
  Company Number: None

PATIENT
  Sex: Female
  Weight: 50.6 kg

DRUGS (2)
  1. SORAFENIB [Suspect]
     Indication: PANCREATIC CARCINOMA
     Dosage: 400 MG BID PO
     Route: 048
     Dates: start: 20090810, end: 20100509
  2. ERLOTINIB HYDROCHLORIDE [Suspect]
     Dosage: 100 MF DAILY PO
     Route: 048
     Dates: start: 20090810, end: 20100509

REACTIONS (12)
  - CHOLANGITIS [None]
  - COMPUTERISED TOMOGRAM ABNORMAL [None]
  - HYPOCHLORAEMIA [None]
  - HYPOKALAEMIA [None]
  - HYPONATRAEMIA [None]
  - LEUKOCYTOSIS [None]
  - MALIGNANT NEOPLASM PROGRESSION [None]
  - PANCREATIC CARCINOMA [None]
  - REGURGITATION [None]
  - RENAL IMPAIRMENT [None]
  - URINARY TRACT INFECTION [None]
  - VOMITING [None]
